FAERS Safety Report 4353814-0 (Version None)
Quarter: 2004Q2

REPORT INFORMATION
  Report Type: 
  Country: None (occurrence: None)
  Receive Date: 20040430
  Receipt Date: 20040418
  Transmission Date: 20050107
  Serious: Yes (Other)
  Sender: FDA-Public Use
  Company Number: K200400617

PATIENT
  Age: 53 Year
  Sex: Female
  Weight: 56 kg

DRUGS (2)
  1. BICILLIN C-R 900/300 [Suspect]
     Indication: ACUTE TONSILLITIS
     Dosage: INTRAMUSCULAR
     Route: 030
  2. PENICILLIN G POTASSIUM [Suspect]
     Indication: ACUTE TONSILLITIS
     Dosage: INTRAMUSCULAR
     Route: 030

REACTIONS (6)
  - INJECTION SITE ERYTHEMA [None]
  - INJECTION SITE OEDEMA [None]
  - INJECTION SITE PRURITUS [None]
  - SUDDEN HEARING LOSS [None]
  - TINNITUS [None]
  - VERTIGO [None]
